FAERS Safety Report 21092548 (Version 2)
Quarter: 2023Q1

REPORT INFORMATION
  Report Type: Spontaneous
  Country: CN (occurrence: CN)
  Receive Date: 20220718
  Receipt Date: 20230217
  Transmission Date: 20230417
  Serious: Yes (Hospitalization)
  Sender: FDA-Public Use
  Company Number: CN-NOVARTISPH-NVSC2022CN161124

PATIENT
  Age: 70 Year
  Sex: Male
  Weight: 65 kg

DRUGS (3)
  1. AZARGA [Suspect]
     Active Substance: BRINZOLAMIDE\TIMOLOL MALEATE
     Indication: Intraocular pressure test
     Dosage: 1 DRP, BID (1 DROP PER TIME)
     Route: 047
     Dates: start: 20220627, end: 20220628
  2. TAFLUPROST [Concomitant]
     Active Substance: TAFLUPROST
     Indication: Intraocular pressure test
     Dosage: 1 DRP, QD
     Route: 047
     Dates: start: 20220627, end: 20220701
  3. BRIMONIDINE TARTRATE [Concomitant]
     Active Substance: BRIMONIDINE TARTRATE
     Indication: Intraocular pressure test
     Dosage: 1 DRP, BID
     Route: 047
     Dates: start: 20220627, end: 20220701

REACTIONS (5)
  - Syncope [Recovering/Resolving]
  - Seizure [Recovering/Resolving]
  - Shock [Recovering/Resolving]
  - Blood pressure decreased [Recovering/Resolving]
  - Bradycardia [Unknown]

NARRATIVE: CASE EVENT DATE: 20220627
